FAERS Safety Report 15865499 (Version 1)
Quarter: 2019Q1

REPORT INFORMATION
  Report Type: Spontaneous
  Country: TW (occurrence: TW)
  Receive Date: 20190125
  Receipt Date: 20190125
  Transmission Date: 20190417
  Serious: Yes (Other)
  Sender: FDA-Public Use
  Company Number: TW-JNJFOC-20190126204

PATIENT
  Age: 7 Decade
  Sex: Female
  Weight: 52 kg

DRUGS (2)
  1. REGAINE SOLUTION 2% [Suspect]
     Active Substance: MINOXIDIL
     Indication: ALOPECIA
     Dosage: ONE OR TWO TIMES IN ONE DAY
     Route: 061
     Dates: start: 20181001
  2. REGAINE SOLUTION 2% [Suspect]
     Active Substance: MINOXIDIL
     Route: 061

REACTIONS (3)
  - Inappropriate schedule of product administration [Unknown]
  - Blood pressure increased [Not Recovered/Not Resolved]
  - Underdose [Unknown]

NARRATIVE: CASE EVENT DATE: 20181201
